FAERS Safety Report 6010722-7 (Version None)
Quarter: 2008Q4

REPORT INFORMATION
  Report Type: 
  Country: None (occurrence: None)
  Receive Date: 20081218
  Receipt Date: 20071216
  Transmission Date: 20090506
  Serious: No
  Sender: FDA-Public Use
  Company Number: US-AMGEN-KDL257138

PATIENT
  Sex: Male

DRUGS (1)
  1. ENBREL [Suspect]
     Indication: PSORIASIS
     Route: 058
     Dates: start: 20070905

REACTIONS (4)
  - ARTHRALGIA [None]
  - NECK PAIN [None]
  - PAIN IN EXTREMITY [None]
  - PSORIASIS [None]
